FAERS Safety Report 14273990 (Version 1)
Quarter: 2017Q4

REPORT INFORMATION
  Report Type: Spontaneous
  Country: JP (occurrence: JP)
  Receive Date: 20171211
  Receipt Date: 20171211
  Transmission Date: 20180321
  Serious: Yes (Disabling, Other)
  Sender: FDA-Public Use
  Company Number: JP-OTSUKA-011354

PATIENT
  Age: 58 Year
  Sex: Female

DRUGS (10)
  1. ABILIFY [Suspect]
     Active Substance: ARIPIPRAZOLE
     Dosage: 12 MG, TID
     Route: 048
     Dates: start: 20080329, end: 20080614
  2. RISPERDAL [Suspect]
     Active Substance: RISPERIDONE
     Dosage: 4 MG, TID
     Route: 048
     Dates: start: 20080329, end: 20080420
  3. BENZALIN [Suspect]
     Active Substance: NITRAZEPAM
     Indication: PRODUCT USED FOR UNKNOWN INDICATION
     Dosage: 5 MG, QD
     Route: 048
     Dates: start: 20080301, end: 20080614
  4. SURMONTIL [Suspect]
     Active Substance: TRIMIPRAMINE MALEATE
     Indication: PRODUCT USED FOR UNKNOWN INDICATION
     Dosage: 25 MG, BID
     Route: 048
     Dates: start: 20080301, end: 20080614
  5. ROHYPNOL [Suspect]
     Active Substance: FLUNITRAZEPAM
     Indication: PRODUCT USED FOR UNKNOWN INDICATION
     Dosage: 2 MG, QD
     Route: 048
     Dates: start: 20080301, end: 20080614
  6. RISPERDAL [Suspect]
     Active Substance: RISPERIDONE
     Indication: PRODUCT USED FOR UNKNOWN INDICATION
     Dosage: 2 MG, TID
     Route: 048
     Dates: start: 20080301, end: 20080323
  7. RISPERDAL [Suspect]
     Active Substance: RISPERIDONE
     Dosage: 9 MG, QD
     Route: 048
     Dates: start: 20080324, end: 20080328
  8. RISPERDAL [Suspect]
     Active Substance: RISPERIDONE
     Dosage: 2 MG, TID
     Route: 048
     Dates: start: 20080421, end: 20080614
  9. ABILIFY [Suspect]
     Active Substance: ARIPIPRAZOLE
     Indication: SCHIZOPHRENIA
     Dosage: 3 MG, TID
     Route: 048
     Dates: start: 20080303, end: 20080323
  10. ABILIFY [Suspect]
     Active Substance: ARIPIPRAZOLE
     Dosage: 9 MG, TID
     Route: 048
     Dates: start: 20080324, end: 20080328

REACTIONS (3)
  - Dysphonia [Not Recovered/Not Resolved]
  - Dysarthria [Not Recovered/Not Resolved]
  - Overdose [Unknown]

NARRATIVE: CASE EVENT DATE: 20080301
